FAERS Safety Report 9691515 (Version 2)
Quarter: 2014Q1

REPORT INFORMATION
  Report Type: Report from Study
  Country: FR (occurrence: FR)
  Receive Date: 20131115
  Receipt Date: 20140108
  Transmission Date: 20141002
  Serious: Yes (Hospitalization, Disabling, Other)
  Sender: FDA-Public Use
  Company Number: FR-CELGENEUS-056-21880-13106241

PATIENT
  Age: 67 Year
  Sex: Male
  Weight: 95 kg

DRUGS (5)
  1. REVLIMID [Suspect]
     Indication: T-CELL LYMPHOMA
     Dosage: 25 MILLIGRAM
     Route: 048
     Dates: start: 20131011, end: 20131024
  2. CYCLOPHOSPHAMIDE [Suspect]
     Indication: LYMPHOMA
     Route: 065
     Dates: start: 20131011
  3. PREDNISOLONE [Suspect]
     Indication: LYMPHOMA
     Route: 065
     Dates: start: 20131011
  4. ADRIAMYCIN [Suspect]
     Indication: LYMPHOMA
     Route: 065
     Dates: start: 20131011
  5. VINCRISTINE [Suspect]
     Indication: LYMPHOMA
     Route: 065
     Dates: start: 20131011

REACTIONS (1)
  - Cerebral salt-wasting syndrome [Recovered/Resolved]
